FAERS Safety Report 21625392 (Version 2)
Quarter: 2022Q4

REPORT INFORMATION
  Report Type: Other
  Country: US (occurrence: None)
  Receive Date: 20221122
  Receipt Date: 20221205
  Transmission Date: 20230113
  Serious: No
  Sender: FDA-Public Use
  Company Number: US-ROCHE-3219331

PATIENT
  Age: 48 Year
  Sex: Female
  Weight: 49.486 kg

DRUGS (10)
  1. OCREVUS [Suspect]
     Active Substance: OCRELIZUMAB
     Indication: Secondary progressive multiple sclerosis
     Dosage: 300 MG ON DAY 1 AND DAY 15
     Route: 042
     Dates: start: 202105
  2. OCREVUS [Suspect]
     Active Substance: OCRELIZUMAB
     Indication: Primary progressive multiple sclerosis
  3. AMPYRA [Concomitant]
     Active Substance: DALFAMPRIDINE
  4. VIIBRYD [Concomitant]
     Active Substance: VILAZODONE HYDROCHLORIDE
  5. BACLOFEN [Concomitant]
     Active Substance: BACLOFEN
  6. BIRTH CONTROL (UNK INGREDIENTS) [Concomitant]
  7. MODAFINIL [Concomitant]
     Active Substance: MODAFINIL
  8. BIOTIN [Concomitant]
     Active Substance: BIOTIN
  9. VITAMIN D3 [Concomitant]
     Active Substance: CHOLECALCIFEROL
  10. VALACYCLOVIR HYDROCHLORIDE [Concomitant]
     Active Substance: VALACYCLOVIR HYDROCHLORIDE

REACTIONS (3)
  - Migraine [Not Recovered/Not Resolved]
  - Asthenia [Not Recovered/Not Resolved]
  - Herpes zoster [Unknown]
